FAERS Safety Report 23193355 (Version 1)
Quarter: 2023Q4

REPORT INFORMATION
  Report Type: Report from Study
  Country: CA (occurrence: CA)
  Receive Date: 20231116
  Receipt Date: 20231116
  Transmission Date: 20240109
  Serious: Yes (Hospitalization, Other)
  Sender: FDA-Public Use
  Company Number: CA-TEVA-2023-CA-2926160

PATIENT
  Age: 67 Year
  Sex: Female
  Weight: 64 kg

DRUGS (7)
  1. CINQAIR [Suspect]
     Active Substance: RESLIZUMAB
     Indication: Asthma
     Dosage: LAST INFUSION DATE: 14-AUG-2023
     Route: 042
     Dates: start: 20170726
  2. CINQAIR [Suspect]
     Active Substance: RESLIZUMAB
     Dosage: LAST INFUSION DATE: 13-OCT-2023
     Route: 042
     Dates: start: 20170726
  3. VENTOLIN [Concomitant]
     Active Substance: ALBUTEROL SULFATE
     Indication: Product used for unknown indication
     Dosage: 0-4 PUFFS WEEK
     Route: 065
  4. ALVESCO [Concomitant]
     Active Substance: CICLESONIDE
     Indication: Product used for unknown indication
     Dosage: 200 2 PUFFS TWICE A DAY
     Route: 065
  5. ZENHALE [Concomitant]
     Active Substance: FORMOTEROL FUMARATE\MOMETASONE FUROATE
     Indication: Product used for unknown indication
     Dosage: 200/5 2 PUFFS TWICE A DAY AS NEEDED
     Route: 065
  6. XOLAIR [Concomitant]
     Active Substance: OMALIZUMAB
     Indication: Product used for unknown indication
     Route: 065
  7. PREDNISONE [Concomitant]
     Active Substance: PREDNISONE
     Indication: Product used for unknown indication
     Route: 065

REACTIONS (3)
  - Asthma [Unknown]
  - Pneumonia [Recovering/Resolving]
  - Incorrect dose administered [Unknown]

NARRATIVE: CASE EVENT DATE: 20230101
